FAERS Safety Report 9011291 (Version 2)
Quarter: 2013Q4

REPORT INFORMATION
  Report Type: Spontaneous
  Country: GB (occurrence: GB)
  Receive Date: 20130109
  Receipt Date: 20131001
  Transmission Date: 20140711
  Serious: Yes (Other)
  Sender: FDA-Public Use
  Company Number: GB-B.I. PHARMACEUTICALS,INC./RIDGEFIELD-2012-UK-01958UK

PATIENT
  Age: 67 Year
  Sex: Male

DRUGS (5)
  1. SPIRIVA [Suspect]
     Indication: CHRONIC OBSTRUCTIVE PULMONARY DISEASE
     Dosage: 18 MCG
     Route: 055
     Dates: start: 20121106
  2. LANSOPRAZOLE [Concomitant]
     Indication: DYSPEPSIA
     Dosage: 15 MG
     Route: 048
     Dates: start: 20101103
  3. SERETIDE [Concomitant]
     Indication: ASTHMA
     Dosage: 1000 MCG
     Route: 055
     Dates: start: 20101103
  4. SIMVASTATIN [Concomitant]
     Indication: HYPERCHOLESTEROLAEMIA
     Dosage: 40 MG
     Route: 048
     Dates: start: 20101103
  5. VENTOLIN [Concomitant]
     Indication: ASTHMA
     Route: 055
     Dates: start: 20101103

REACTIONS (1)
  - Erectile dysfunction [Not Recovered/Not Resolved]
